FAERS Safety Report 24802934 (Version 1)
Quarter: 2025Q1

REPORT INFORMATION
  Report Type: Spontaneous
  Country: BE (occurrence: BE)
  Receive Date: 20250103
  Receipt Date: 20250103
  Transmission Date: 20250409
  Serious: Yes (Hospitalization, Other)
  Sender: CELLTRION
  Company Number: BE-ROCHE-10000006849

PATIENT

DRUGS (2)
  1. BEVACIZUMAB [Suspect]
     Active Substance: BEVACIZUMAB
     Indication: Hepatocellular carcinoma
     Route: 065
  2. ATEZOLIZUMAB [Suspect]
     Active Substance: ATEZOLIZUMAB
     Indication: Hepatocellular carcinoma
     Route: 065

REACTIONS (9)
  - Chronic kidney disease [Unknown]
  - Pigment nephropathy [Unknown]
  - Hepatic function abnormal [Unknown]
  - Delirium [Unknown]
  - Rhabdomyolysis [Unknown]
  - Pneumonia [Unknown]
  - Cardiac failure [Unknown]
  - Disease progression [Unknown]
  - Intentional product use issue [Unknown]
